FAERS Safety Report 23611998 (Version 1)
Quarter: 2024Q1

REPORT INFORMATION
  Report Type: Spontaneous
  Country: US (occurrence: None)
  Receive Date: 20240308
  Receipt Date: 20240308
  Transmission Date: 20240410
  Serious: No
  Sender: FDA-Public Use
  Company Number: None

PATIENT
  Age: 55 Year
  Sex: Female

DRUGS (1)
  1. COSENTYX [Suspect]
     Active Substance: SECUKINUMAB
     Dosage: FREQUENCY : AS DIRECTED;?
     Route: 058
     Dates: start: 201904

REACTIONS (3)
  - Nasopharyngitis [None]
  - Influenza [None]
  - Weight decreased [None]
